FAERS Safety Report 24371079 (Version 2)
Quarter: 2024Q4

REPORT INFORMATION
  Report Type: Spontaneous
  Country: US (occurrence: US)
  Receive Date: 20240927
  Receipt Date: 20241017
  Transmission Date: 20250115
  Serious: Yes (Other)
  Sender: AUROBINDO
  Company Number: US-AUROBINDO-AUR-APL-2024-046173

PATIENT
  Age: 58 Year
  Sex: Female

DRUGS (20)
  1. CETIRIZINE [Suspect]
     Active Substance: CETIRIZINE HYDROCHLORIDE
     Indication: Premedication
     Dosage: UNK
     Route: 065
  2. CETIRIZINE [Suspect]
     Active Substance: CETIRIZINE HYDROCHLORIDE
     Indication: Anaphylaxis prophylaxis
  3. PREDNISONE [Suspect]
     Active Substance: PREDNISONE
     Indication: Premedication
     Dosage: UNK
     Route: 065
  4. PREDNISONE [Suspect]
     Active Substance: PREDNISONE
     Indication: Anaphylaxis prophylaxis
  5. RANITIDINE [Suspect]
     Active Substance: RANITIDINE
     Indication: Premedication
     Dosage: UNK
     Route: 065
  6. RANITIDINE [Suspect]
     Active Substance: RANITIDINE
     Indication: Anaphylaxis prophylaxis
  7. ZILEUTON [Suspect]
     Active Substance: ZILEUTON
     Indication: Premedication
     Dosage: UNK
     Route: 065
  8. ZILEUTON [Suspect]
     Active Substance: ZILEUTON
     Indication: Anaphylaxis prophylaxis
  9. ERLOTINIB [Suspect]
     Active Substance: ERLOTINIB
     Indication: Lung adenocarcinoma
     Dosage: UNK
     Route: 065
  10. ERLOTINIB [Suspect]
     Active Substance: ERLOTINIB
     Dosage: REINITIATED FOR 4 MONTHS
     Route: 065
  11. OSIMERTINIB [Concomitant]
     Active Substance: OSIMERTINIB
     Indication: Lung adenocarcinoma
     Dosage: UNK MILLIGRAM
     Route: 065
  12. OSIMERTINIB [Concomitant]
     Active Substance: OSIMERTINIB
     Dosage: 80 MILLIGRAM (REINTRODUCED)
     Route: 065
  13. OSIMERTINIB [Concomitant]
     Active Substance: OSIMERTINIB
     Dosage: 80 MILLIGRAM, DAILY (AFTER 3 MONTHS )
     Route: 065
  14. EPINEPHRINE [Concomitant]
     Active Substance: EPINEPHRINE
     Indication: Product used for unknown indication
     Dosage: UNK
     Route: 065
  15. METHYLPREDNISOLONE [Concomitant]
     Active Substance: METHYLPREDNISOLONE
     Indication: Product used for unknown indication
     Dosage: UNK
     Route: 065
  16. ALBUTEROL [Concomitant]
     Active Substance: ALBUTEROL
     Indication: Product used for unknown indication
     Dosage: UNK
     Route: 065
  17. OMALIZUMAB [Concomitant]
     Active Substance: OMALIZUMAB
     Indication: Product used for unknown indication
     Dosage: 300 MG EVERY 28 DAYS FOR 3 CYCLES
     Route: 065
  18. MIDOSTAURIN [Concomitant]
     Active Substance: MIDOSTAURIN
     Indication: Product used for unknown indication
     Dosage: 100 MG TWICE DAILY
     Route: 065
  19. ONDANSETRON [Concomitant]
     Active Substance: ONDANSETRON
     Indication: Product used for unknown indication
     Dosage: UNK
     Route: 065
  20. AVAPRITINIB [Concomitant]
     Active Substance: AVAPRITINIB
     Indication: Product used for unknown indication
     Dosage: 25 MILLIGRAM, DAILY
     Route: 065

REACTIONS (1)
  - Drug ineffective [Unknown]
